FAERS Safety Report 4778867-7 (Version None)
Quarter: 2005Q3

REPORT INFORMATION
  Report Type: 
  Country: None (occurrence: None)
  Receive Date: 20050926
  Receipt Date: 20050922
  Transmission Date: 20060218
  Serious: Yes (Death)
  Sender: FDA-Public Use
  Company Number: 2005UW14154

PATIENT
  Age: 45 Year
  Sex: Female

DRUGS (5)
  1. MERREM [Suspect]
     Route: 042
  2. GATIFLOXACIN [Suspect]
     Route: 048
  3. RIFAMPIN [Suspect]
     Route: 048
  4. VANCOMYCIN [Suspect]
     Dosage: 1 GRAM (2 INTERMITTENTLY)
     Route: 042
  5. ZYVOXAM [Suspect]

REACTIONS (3)
  - CONDITION AGGRAVATED [None]
  - SEPSIS [None]
  - THROMBOCYTOPENIA [None]
